FAERS Safety Report 16814209 (Version 1)
Quarter: 2019Q3

REPORT INFORMATION
  Report Type: Spontaneous
  Country: US (occurrence: US)
  Receive Date: 20190917
  Receipt Date: 20190917
  Transmission Date: 20191005
  Serious: No
  Sender: FDA-Public Use
  Company Number: US-ALLERGAN-1901096US

PATIENT
  Sex: Male
  Weight: 67.57 kg

DRUGS (1)
  1. LINZESS [Suspect]
     Active Substance: LINACLOTIDE
     Indication: PRODUCT USED FOR UNKNOWN INDICATION
     Dosage: UNK
     Route: 065

REACTIONS (9)
  - Decreased appetite [Unknown]
  - Flatulence [Unknown]
  - Dizziness [Unknown]
  - Depression [Unknown]
  - Product dose omission [Unknown]
  - Bowel movement irregularity [Unknown]
  - Change of bowel habit [Unknown]
  - Weight decreased [Unknown]
  - Diarrhoea [Unknown]
